FAERS Safety Report 9162907 (Version 1)
Quarter: 2013Q1

REPORT INFORMATION
  Report Type: Spontaneous
  Country: GB (occurrence: GB)
  Receive Date: 20130314
  Receipt Date: 20130314
  Transmission Date: 20140127
  Serious: Yes (Other)
  Sender: FDA-Public Use
  Company Number: PHHY2013GB023015

PATIENT
  Age: 2 Year
  Sex: Male
  Weight: 13.6 kg

DRUGS (1)
  1. CEFTRIAXONE [Suspect]
     Indication: PERIORBITAL CELLULITIS
     Dosage: 680 MG, UNK
     Route: 042
     Dates: start: 20121129, end: 20121129

REACTIONS (6)
  - Cough [Recovered/Resolved]
  - Wheezing [Recovered/Resolved]
  - Panic reaction [Recovered/Resolved]
  - Scratch [Unknown]
  - Pain in extremity [Unknown]
  - Diarrhoea [Unknown]
